FAERS Safety Report 8454939-0 (Version None)
Quarter: 2012Q2

REPORT INFORMATION
  Report Type: 
  Country: None (occurrence: None)
  Receive Date: 20120621
  Receipt Date: 20120619
  Transmission Date: 20120825
  Serious: No
  Sender: FDA-Public Use
  Company Number: US-PFIZER INC-2012148682

PATIENT
  Sex: Male
  Weight: 136 kg

DRUGS (14)
  1. CELEXA [Suspect]
     Indication: INSOMNIA
  2. ZOLOFT [Suspect]
     Indication: INSOMNIA
  3. PROZAC [Suspect]
     Indication: INSOMNIA
  4. EFFEXOR [Suspect]
     Indication: DEPRESSION
     Dosage: 100 MG, DAILY
     Dates: start: 20110415, end: 20110101
  5. LORAZEPAM [Concomitant]
     Indication: ANXIETY
     Dosage: 3 MG, DAILY
  6. ZOLOFT [Suspect]
     Indication: DEPRESSION
     Dosage: 20 MG, DAILY
     Dates: start: 20101001, end: 20100101
  7. PROZAC [Suspect]
     Indication: DEPRESSION
     Dosage: 150 MG, DAILY
     Dates: start: 20101208, end: 20110316
  8. EFFEXOR [Suspect]
     Indication: ANXIETY
     Dosage: 150 MG, DAILY
     Dates: start: 20110101, end: 20111220
  9. SEROQUEL [Concomitant]
     Indication: INSOMNIA
     Dosage: 300 MG, DAILY
  10. EFFEXOR [Suspect]
     Indication: INSOMNIA
  11. ZOLOFT [Suspect]
     Indication: ANXIETY
     Dosage: 50 MG, DAILLY
     Dates: start: 20100101, end: 20101201
  12. PROZAC [Suspect]
     Indication: ANXIETY
  13. CELEXA [Suspect]
     Indication: DEPRESSION
     Dosage: 150 MG, DAILY
     Dates: start: 20110316, end: 20110415
  14. CELEXA [Suspect]
     Indication: ANXIETY

REACTIONS (1)
  - WEIGHT INCREASED [None]
